FAERS Safety Report 15673874 (Version 1)
Quarter: 2018Q4

REPORT INFORMATION
  Report Type: Spontaneous
  Country: US (occurrence: US)
  Receive Date: 20181129
  Receipt Date: 20181129
  Transmission Date: 20190205
  Serious: No
  Sender: FDA-Public Use
  Company Number: US-MYLANLABS-2018M1087540

PATIENT

DRUGS (1)
  1. DILTIAZEM HYDROCHLORIDE TABLETS, USP [Suspect]
     Active Substance: DILTIAZEM HYDROCHLORIDE
     Indication: HYPERTENSION
     Dosage: 60 MILLIGRAM, BID
     Route: 048
     Dates: end: 20181111

REACTIONS (6)
  - Back pain [Recovered/Resolved]
  - Sneezing [Recovered/Resolved]
  - Cough [Recovered/Resolved]
  - Fatigue [Recovered/Resolved]
  - Rhinorrhoea [Recovered/Resolved]
  - Throat irritation [Recovered/Resolved]
